FAERS Safety Report 20545562 (Version 2)
Quarter: 2022Q2

REPORT INFORMATION
  Report Type: Spontaneous
  Country: PL (occurrence: PL)
  Receive Date: 20220303
  Receipt Date: 20220405
  Transmission Date: 20220721
  Serious: Yes (Other)
  Sender: FDA-Public Use
  Company Number: None

PATIENT
  Sex: Male

DRUGS (5)
  1. FLUOROURACIL [Suspect]
     Active Substance: FLUOROURACIL
     Indication: Adenocarcinoma of colon
     Dosage: UNK, CYCLIC
     Route: 065
     Dates: start: 20210415
  2. OXALIPLATIN [Suspect]
     Active Substance: OXALIPLATIN
     Indication: Adenocarcinoma of colon
     Dosage: UNK, CYCLIC
     Route: 065
     Dates: start: 20210415
  3. LEUCOVORIN [Suspect]
     Active Substance: LEUCOVORIN
     Indication: Adenocarcinoma of colon
     Dosage: UNK, CYCLIC
     Route: 065
     Dates: start: 20210415
  4. VECTIBIX [Suspect]
     Active Substance: PANITUMUMAB
     Indication: Adenocarcinoma of colon
     Dosage: UNK, CYCLIC (3 TREATMENT CYCLES)
     Route: 065
     Dates: start: 20210415, end: 20210604
  5. VECTIBIX [Suspect]
     Active Substance: PANITUMUMAB
     Indication: Metastases to liver

REACTIONS (6)
  - Intestinal obstruction [Recovered/Resolved]
  - COVID-19 [Unknown]
  - General physical health deterioration [Unknown]
  - Adenocarcinoma of colon [Unknown]
  - Anaemia [Unknown]
  - Pyrexia [Unknown]

NARRATIVE: CASE EVENT DATE: 20210101
